FAERS Safety Report 4294246-3 (Version None)
Quarter: 2004Q1

REPORT INFORMATION
  Report Type: 
  Country: None (occurrence: None)
  Receive Date: 20040211
  Receipt Date: 20040123
  Transmission Date: 20041129
  Serious: Yes (Hospitalization)
  Sender: FDA-Public Use
  Company Number: EWC031237428

PATIENT
  Age: 61 Year
  Sex: Male

DRUGS (3)
  1. CIALIS [Suspect]
     Indication: ERECTILE DYSFUNCTION
     Dosage: 20 MG/AS NEEDED
     Dates: start: 20030501, end: 20031101
  2. CALCIUM BLOCKERS [Concomitant]
  3. ACETYLSALICYLIC ACID SRT [Concomitant]

REACTIONS (24)
  - ANAEMIA MACROCYTIC [None]
  - ASPARTATE AMINOTRANSFERASE INCREASED [None]
  - BACK PAIN [None]
  - BIOPSY COLON ABNORMAL [None]
  - BLOOD LACTATE DEHYDROGENASE INCREASED [None]
  - COLONOSCOPY ABNORMAL [None]
  - DIVERTICULITIS [None]
  - DIVERTICULUM [None]
  - HAEMOLYTIC ANAEMIA [None]
  - HEPATIC STEATOSIS [None]
  - HEPATOMEGALY [None]
  - IATROGENIC INJURY [None]
  - INFLAMMATION [None]
  - LIGHT CHAIN ANALYSIS INCREASED [None]
  - LYMPHOCYTE COUNT DECREASED [None]
  - LYMPHOPROLIFERATIVE DISORDER [None]
  - MUCOSAL HAEMORRHAGE [None]
  - NEUTROPHIL COUNT INCREASED [None]
  - NUCLEAR MAGNETIC RESONANCE IMAGING ABNORMAL [None]
  - OESOPHAGOSCOPY ABNORMAL [None]
  - REFLUX OESOPHAGITIS [None]
  - RENAL CYST [None]
  - SPLENOMEGALY [None]
  - ULCER [None]
